FAERS Safety Report 6056102-X (Version None)
Quarter: 2009Q1

REPORT INFORMATION
  Report Type: 
  Country: None (occurrence: None)
  Receive Date: 20090128
  Receipt Date: 20090115
  Transmission Date: 20090719
  Serious: Yes (Death, Hospitalization)
  Sender: FDA-Public Use
  Company Number: JP-ABBOTT-09P-087-0500057-00

PATIENT
  Age: 82 Year
  Sex: Male

DRUGS (7)
  1. LEUPROLIDE ACETATE [Suspect]
     Indication: PROSTATE CANCER STAGE IV
     Route: 058
     Dates: start: 20060925, end: 20080526
  2. LEUPROLIDE ACETATE [Suspect]
     Dates: start: 20060828, end: 20060828
  3. CASODEX [Concomitant]
     Indication: PROSTATE CANCER STAGE IV
     Route: 048
     Dates: end: 20080521
  4. EPICAL5 [Concomitant]
     Indication: SPINAL CORD INJURY
     Route: 048
     Dates: end: 20080521
  5. OSTELUC [Concomitant]
     Indication: SPINAL CORD INJURY
     Route: 048
     Dates: end: 20080521
  6. WARKMIN [Concomitant]
     Indication: SPINAL CORD INJURY
     Route: 048
     Dates: end: 20080521
  7. INSULIN HUMAN [Concomitant]
     Indication: DIABETES MELLITUS
     Route: 058
     Dates: end: 20080521

REACTIONS (2)
  - BACK PAIN [None]
  - SUBDURAL HAEMATOMA [None]
